FAERS Safety Report 4535450-6 (Version None)
Quarter: 2004Q4

REPORT INFORMATION
  Report Type: 
  Country: None (occurrence: None)
  Receive Date: 20041214
  Receipt Date: 20040917
  Transmission Date: 20050328
  Serious: No
  Sender: FDA-Public Use
  Company Number: USA040978645

PATIENT
  Age: 73 Year
  Sex: Male
  Weight: 95 kg

DRUGS (2)
  1. CIALIS [Suspect]
     Indication: ERECTILE DYSFUNCTION
     Dosage: 20 MG OTHER
     Dates: start: 20040801
  2. LISINOPRIL [Concomitant]

REACTIONS (4)
  - FATIGUE [None]
  - PREMATURE EJACULATION [None]
  - STRESS SYMPTOMS [None]
  - THERAPEUTIC RESPONSE DECREASED [None]
